FAERS Safety Report 13089357 (Version 8)
Quarter: 2017Q2

REPORT INFORMATION
  Report Type: Spontaneous
  Country: US (occurrence: US)
  Receive Date: 20170105
  Receipt Date: 20170601
  Transmission Date: 20170830
  Serious: Yes (Hospitalization, Other)
  Sender: FDA-Public Use
  Company Number: US-PFIZER INC-2016556857

PATIENT
  Age: 73 Year
  Sex: Male
  Weight: 88 kg

DRUGS (17)
  1. ASPIRIN 81 [Concomitant]
     Active Substance: ASPIRIN
     Dosage: 81 MG, DAILY
     Route: 048
  2. BISOPROLOL FUMARATE. [Concomitant]
     Active Substance: BISOPROLOL FUMARATE
     Dosage: 10 MG, DAILY
     Route: 048
  3. SUTENT [Suspect]
     Active Substance: SUNITINIB MALATE
     Dosage: 37.5 MG, CYCLIC (2 WEEKS ON/1 WEEK OFF)
  4. LIPITOR [Concomitant]
     Active Substance: ATORVASTATIN CALCIUM
     Dosage: 40 MG, 1X/DAY, (TAKE ONE TABLET BY MOUTH QHS)
     Route: 048
  5. DRONABINOL. [Concomitant]
     Active Substance: DRONABINOL
     Dosage: 2.5 MG, 2X/DAY
     Route: 048
  6. SUTENT [Suspect]
     Active Substance: SUNITINIB MALATE
     Dosage: UNK
     Dates: start: 20170119
  7. CLOPIDOGREL BISULFATE. [Concomitant]
     Active Substance: CLOPIDOGREL BISULFATE
     Dosage: 75 MG, DAILY
  8. METOPROLOL TARTRATE. [Concomitant]
     Active Substance: METOPROLOL TARTRATE
     Dosage: 25 MG, 2X/DAY
     Route: 048
  9. AMIODARONE HCL [Concomitant]
     Active Substance: AMIODARONE HYDROCHLORIDE
     Dosage: 200 MG, DAILY, (1 BY MOUTH DAILY)
     Route: 048
  10. MAGNESIUM [Concomitant]
     Active Substance: MAGNESIUM
     Dosage: UNK
  11. AMLODIPINE BESYLATE. [Concomitant]
     Active Substance: AMLODIPINE BESYLATE
     Dosage: 2.5 MG, DAILY, (TAKE ONE TABLET PO DAILY)
     Route: 048
  12. PRILOSEC [Concomitant]
     Active Substance: OMEPRAZOLE MAGNESIUM
     Dosage: 20 MG, 1X/DAY, (ONE TAB PO Q AM 30 MIN BEFORE B^FAST.)
     Route: 048
  13. SUTENT [Suspect]
     Active Substance: SUNITINIB MALATE
     Indication: GASTROINTESTINAL STROMAL TUMOUR
     Dosage: 50 MG, CYCLIC, (TAKE 1 CAP BY MOUTH DAILY FOR 4 WEEKS FOLLOWED BY A 2 WEEK REST EVERY 42 DAYS)
     Route: 048
     Dates: start: 20161213
  14. VITAMIN B12 [Concomitant]
     Active Substance: CYANOCOBALAMIN
     Dosage: 1000 UG, 1X/DAY
     Route: 060
  15. VITAMIN B12 [Concomitant]
     Active Substance: CYANOCOBALAMIN
     Dosage: UNK
  16. BABY ASPIRIN [Concomitant]
     Active Substance: ASPIRIN
     Dosage: UNK
  17. IMODIUM [Concomitant]
     Active Substance: LOPERAMIDE HYDROCHLORIDE
     Dosage: UNK

REACTIONS (22)
  - Pneumonia [Unknown]
  - Large intestinal ulcer [Unknown]
  - Stomatitis [Not Recovered/Not Resolved]
  - Decreased appetite [Recovered/Resolved]
  - Pain [Unknown]
  - Burn oral cavity [Recovering/Resolving]
  - Malaise [Unknown]
  - Hypotension [Unknown]
  - Eating disorder [Unknown]
  - Glossodynia [Unknown]
  - Dysgeusia [Unknown]
  - Diarrhoea [Recovered/Resolved]
  - Epistaxis [Unknown]
  - Oral discomfort [Recovering/Resolving]
  - Blood magnesium decreased [Recovering/Resolving]
  - Oral pain [Recovering/Resolving]
  - Rectal haemorrhage [Recovered/Resolved]
  - Tongue discomfort [Recovering/Resolving]
  - Oropharyngeal pain [Recovered/Resolved]
  - Feeling abnormal [Unknown]
  - Internal haemorrhage [Recovered/Resolved]
  - Abdominal distension [Unknown]
